FAERS Safety Report 14575507 (Version 1)
Quarter: 2018Q1

REPORT INFORMATION
  Report Type: Spontaneous
  Country: US (occurrence: US)
  Receive Date: 20180227
  Receipt Date: 20180227
  Transmission Date: 20180509
  Serious: No
  Sender: FDA-Public Use
  Company Number: US-ROCHE-2016819

PATIENT
  Sex: Female

DRUGS (3)
  1. RESCUE INHALER (UNK INGREDIENTS) [Concomitant]
  2. BENADRYL [Concomitant]
     Active Substance: DIPHENHYDRAMINE HYDROCHLORIDE
     Route: 048
  3. XOLAIR [Suspect]
     Active Substance: OMALIZUMAB
     Indication: ASTHMA
     Route: 058
     Dates: start: 20161121

REACTIONS (5)
  - Anxiety [Recovered/Resolved]
  - Dry skin [Unknown]
  - Pruritus [Unknown]
  - Contusion [Unknown]
  - Panic attack [Recovered/Resolved]
